FAERS Safety Report 12242892 (Version 1)
Quarter: 2016Q2

REPORT INFORMATION
  Report Type: Spontaneous
  Country: BR (occurrence: BR)
  Receive Date: 20160406
  Receipt Date: 20160406
  Transmission Date: 20160815
  Serious: Yes (Death, Hospitalization)
  Sender: FDA-Public Use
  Company Number: BR-BAXTER-2016BAX017265

PATIENT
  Age: 57 Year
  Sex: Male
  Weight: 89.4 kg

DRUGS (7)
  1. FAULDLEUCO [Suspect]
     Active Substance: LEUCOVORIN CALCIUM
     Indication: NON-HODGKIN^S LYMPHOMA
     Dosage: PER CYCLE
     Route: 042
     Dates: start: 20160127, end: 20160127
  2. EPHRON [Concomitant]
     Indication: PRODUCT USED FOR UNKNOWN INDICATION
     Route: 065
  3. TEVAETOPO [Suspect]
     Active Substance: ETOPOSIDE
     Indication: NON-HODGKIN^S LYMPHOMA
     Dosage: PER CYCLE
     Route: 042
     Dates: start: 20160127, end: 20160127
  4. RIVOTRIL [Concomitant]
     Active Substance: CLONAZEPAM
     Indication: PRODUCT USED FOR UNKNOWN INDICATION
     Dosage: 4 DROPS
     Route: 065
  5. HOLOXANE [Suspect]
     Active Substance: IFOSFAMIDE
     Indication: NON-HODGKIN^S LYMPHOMA
     Dosage: PER CYCLE
     Route: 042
     Dates: start: 20160127, end: 20160127
  6. FAULDMETRO [Suspect]
     Active Substance: METHOTREXATE SODIUM
     Indication: NON-HODGKIN^S LYMPHOMA
     Dosage: PER CYCLE
     Route: 042
     Dates: start: 20160127, end: 20160127
  7. MITEXAN [Suspect]
     Active Substance: MESNA
     Indication: NON-HODGKIN^S LYMPHOMA
     Dosage: PER CYCLE
     Route: 042
     Dates: start: 20160127, end: 20160127

REACTIONS (7)
  - Bone marrow failure [Unknown]
  - Renal failure [Unknown]
  - Coagulopathy [Unknown]
  - Pneumonia [Fatal]
  - Toxicity to various agents [Unknown]
  - Septic shock [Unknown]
  - Mucosal inflammation [Unknown]

NARRATIVE: CASE EVENT DATE: 20160128
